FAERS Safety Report 7333415-2 (Version None)
Quarter: 2011Q1

REPORT INFORMATION
  Report Type: 
  Country: None (occurrence: None)
  Receive Date: 20110304
  Receipt Date: 20110208
  Transmission Date: 20110831
  Serious: No
  Sender: FDA-Public Use
  Company Number: US-B.I. PHARMACEUTICALS,INC./RIDGEFIELD-2011-BP-05157BP

PATIENT
  Age: 85 Year
  Sex: Male

DRUGS (3)
  1. LISINOPRIL [Concomitant]
  2. HYDROCHLOROTHIAZIDE [Concomitant]
  3. PRADAXA [Suspect]
     Indication: ATRIAL FIBRILLATION
     Dosage: 300 MG
     Route: 048
     Dates: start: 20101101

REACTIONS (3)
  - DYSPEPSIA [None]
  - BLOODY DISCHARGE [None]
  - SINUSITIS [None]
